FAERS Safety Report 5824529-4 (Version None)
Quarter: 2008Q3

REPORT INFORMATION
  Report Type: 
  Country: None (occurrence: None)
  Receive Date: 20080728
  Receipt Date: 20080717
  Transmission Date: 20090109
  Serious: Yes (Other)
  Sender: FDA-Public Use
  Company Number: FR-JNJFOC-20080605814

PATIENT
  Age: 37 Year
  Sex: Male

DRUGS (1)
  1. TOPALGIC [Suspect]
     Indication: BACK PAIN
     Dosage: 3-4 TIMES A WEEK
     Route: 048

REACTIONS (2)
  - AZOOSPERMIA [None]
  - INFERTILITY MALE [None]
